FAERS Safety Report 11177371 (Version 1)
Quarter: 2015Q2

REPORT INFORMATION
  Report Type: Spontaneous
  Country: DE (occurrence: DE)
  Receive Date: 20150610
  Receipt Date: 20150610
  Transmission Date: 20150821
  Serious: Yes (Other)
  Sender: FDA-Public Use
  Company Number: DE-AUROBINDO-AUR-APL-2015-04856

PATIENT
  Age: 74 Year
  Sex: Female

DRUGS (6)
  1. RAMIPRIL-ISIS 2,5 MG TABLET [Suspect]
     Active Substance: HYDROCHLOROTHIAZIDE\RAMIPRIL
     Indication: CARDIAC FAILURE
     Dosage: 1 DF, DAILY
     Route: 048
  2. BISOPROLOL 3.75 MG [Suspect]
     Active Substance: BISOPROLOL
     Indication: CARDIAC FAILURE
     Dosage: 3.75 MG, DAILY
     Route: 048
  3. ELIQUIS [Suspect]
     Active Substance: APIXABAN
     Indication: ATRIAL FIBRILLATION
     Dosage: 5 MG, DAILY
     Route: 048
  4. RAMIPRIL-ISIS 2,5 MG TABLET [Suspect]
     Active Substance: HYDROCHLOROTHIAZIDE\RAMIPRIL
     Indication: HYPERTENSION
  5. TORASEMIDE 10MG [Suspect]
     Active Substance: TORSEMIDE
     Indication: CARDIAC FAILURE
     Dosage: 10 MG, DAILY
     Route: 048
  6. OXAZEPAM. [Suspect]
     Active Substance: OXAZEPAM
     Indication: SLEEP DISORDER
     Dosage: 5 MG, DAILY
     Route: 048

REACTIONS (10)
  - Balance disorder [Not Recovered/Not Resolved]
  - Bronchitis [Not Recovered/Not Resolved]
  - Asthenia [Not Recovered/Not Resolved]
  - Fatigue [Not Recovered/Not Resolved]
  - Hypotension [Not Recovered/Not Resolved]
  - Lacrimation increased [Not Recovered/Not Resolved]
  - Alopecia [Not Recovered/Not Resolved]
  - Autoimmune disorder [Unknown]
  - Narcolepsy [Not Recovered/Not Resolved]
  - Gait disturbance [Unknown]
